FAERS Safety Report 21096484 (Version 2)
Quarter: 2022Q3

REPORT INFORMATION
  Report Type: Spontaneous
  Country: US (occurrence: US)
  Receive Date: 20220718
  Receipt Date: 20220804
  Transmission Date: 20221027
  Serious: Yes (Hospitalization, Other)
  Sender: FDA-Public Use
  Company Number: US-GILEAD-2022-0589174

PATIENT
  Age: 60 Year
  Sex: Male
  Weight: 63.492 kg

DRUGS (8)
  1. HARVONI [Suspect]
     Active Substance: LEDIPASVIR\SOFOSBUVIR
     Indication: Hepatitis C
     Dosage: 1 DOSAGE FORM
     Route: 065
     Dates: start: 20220629
  2. GABAPENTIN [Concomitant]
     Active Substance: GABAPENTIN
  3. DICLOFENAC [Concomitant]
     Active Substance: DICLOFENAC
  4. IBUPROFEN [Concomitant]
     Active Substance: IBUPROFEN
  5. MELATONIN [Concomitant]
     Active Substance: MELATONIN
  6. MINERALS\VITAMINS [Concomitant]
     Active Substance: MINERALS\VITAMINS
  7. SERTRALINE [Concomitant]
     Active Substance: SERTRALINE HYDROCHLORIDE
  8. TRAZODONE [Concomitant]
     Active Substance: TRAZODONE HYDROCHLORIDE

REACTIONS (4)
  - Hallucination, auditory [Unknown]
  - Amnesia [Unknown]
  - Tinnitus [Unknown]
  - Ill-defined disorder [Unknown]

NARRATIVE: CASE EVENT DATE: 20220707
